FAERS Safety Report 6983398-X (Version None)
Quarter: 2010Q3

REPORT INFORMATION
  Report Type: 
  Country: None (occurrence: None)
  Receive Date: 20100914
  Receipt Date: 20100914
  Transmission Date: 20110219
  Serious: Yes (Death)
  Sender: FDA-Public Use
  Company Number: None

PATIENT
  Age: 64 Year
  Sex: Male
  Weight: 91.173 kg

DRUGS (1)
  1. AMIODARONE HCL [Suspect]
     Indication: VENTRICULAR TACHYCARDIA
     Dosage: 200 MG EACH DAY PO; LOADING DOSE 5 GRAMS OVER 5 DAYS IV
     Route: 048
     Dates: start: 20060801, end: 20070127

REACTIONS (4)
  - LABELLED DRUG-DRUG INTERACTION MEDICATION ERROR [None]
  - OXYGEN SUPPLEMENTATION [None]
  - PRODUCT QUALITY ISSUE [None]
  - PULMONARY FIBROSIS [None]
